FAERS Safety Report 5809358-X (Version None)
Quarter: 2008Q3

REPORT INFORMATION
  Report Type: 
  Country: None (occurrence: None)
  Receive Date: 20080714
  Receipt Date: 20080703
  Transmission Date: 20090109
  Serious: Yes (Other)
  Sender: FDA-Public Use
  Company Number: PHNU2008DE01914

PATIENT
  Age: 70 Year
  Sex: Male

DRUGS (3)
  1. TASIGNA [Suspect]
     Dosage: UNK
     Dates: start: 20080401
  2. ATACAND [Concomitant]
     Dosage: UNK
  3. TALSO UNO [Concomitant]

REACTIONS (5)
  - ASTHMA [None]
  - BRONCHOSPASM [None]
  - COUGH [None]
  - DYSPHONIA [None]
  - VOCAL CORD DISORDER [None]
